FAERS Safety Report 24166299 (Version 1)
Quarter: 2024Q3

REPORT INFORMATION
  Report Type: Spontaneous
  Country: DE (occurrence: DE)
  Receive Date: 20240802
  Receipt Date: 20240802
  Transmission Date: 20241016
  Serious: Yes (Other)
  Sender: MERCK
  Company Number: DE-009507513-2407DEU014636

PATIENT
  Age: 3 Month
  Sex: Male
  Weight: 5.3 kg

DRUGS (13)
  1. POSACONAZOLE [Suspect]
     Active Substance: POSACONAZOLE
     Indication: Antifungal prophylaxis
     Dosage: LOADING DOSE DAY 1: 2X6MG/KG IV (2X30MG), THEN 1X6MG/KG IV
     Route: 042
     Dates: start: 20240507, end: 20240515
  2. POSACONAZOLE [Suspect]
     Active Substance: POSACONAZOLE
     Dosage: DOSE 1X3 MG/KG (15 MG) IV
     Route: 042
     Dates: start: 20240516, end: 20240522
  3. CYCLOSPORINE [Concomitant]
     Active Substance: CYCLOSPORINE
     Indication: Immunosuppression
     Dosage: 2X10 MG DAILY IV, LEVEL ADAPTED, END DATE REPORTED AS TO 24-
     Route: 042
     Dates: start: 20240503
  4. PIPERACILLIN AND TAZOBACTAM [Concomitant]
     Active Substance: PIPERACILLIN SODIUM\TAZOBACTAM SODIUM
     Indication: Anti-infective therapy
     Dosage: 3X0.6 G
     Route: 042
     Dates: start: 20240508, end: 20240519
  5. TOBRAMYCIN [Concomitant]
     Active Substance: TOBRAMYCIN\TOBRAMYCIN SULFATE
     Indication: Anti-infective therapy
     Dosage: 1X 15 MG
     Route: 042
     Dates: start: 20240508, end: 20240510
  6. LETERMOVIR [Concomitant]
     Active Substance: LETERMOVIR
     Indication: Antiviral prophylaxis
     Dosage: 1X 20 MG
     Route: 042
     Dates: start: 20240507, end: 20240623
  7. MYCOPHENOLATE MOFETIL [Concomitant]
     Active Substance: MYCOPHENOLATE MOFETIL
     Indication: Immunosuppression
     Dosage: 3X80 MG
     Route: 042
  8. ONDANSETRON [Concomitant]
     Active Substance: ONDANSETRON
  9. PANTOPRAZOLE SODIUM [Concomitant]
     Active Substance: PANTOPRAZOLE SODIUM
  10. URSODIOL [Concomitant]
     Active Substance: URSODIOL
  11. RIFAXIMIN [Concomitant]
     Active Substance: RIFAXIMIN
  12. VIT D [VITAMIN D NOS] [Concomitant]
  13. MYCOPHENOLATE MOFETIL [Concomitant]
     Active Substance: MYCOPHENOLATE MOFETIL

REACTIONS (4)
  - Renal impairment [Recovered/Resolved]
  - Venoocclusive liver disease [Recovered/Resolved]
  - Drug level increased [Recovered/Resolved]
  - Off label use [Unknown]

NARRATIVE: CASE EVENT DATE: 20240507
